FAERS Safety Report 26063082 (Version 1)
Quarter: 2025Q4

REPORT INFORMATION
  Report Type: Spontaneous
  Country: US (occurrence: None)
  Receive Date: 20251118
  Receipt Date: 20251118
  Transmission Date: 20260117
  Serious: Yes (Hospitalization)
  Sender: FDA-CTU
  Company Number: None

PATIENT
  Age: 76 Year
  Sex: Female

DRUGS (3)
  1. CARBAMAZEPINE [Suspect]
     Active Substance: CARBAMAZEPINE
     Indication: Insomnia
  2. adderall 20mg TID [Concomitant]
  3. clonazepam 2mg BID prn [Concomitant]

REACTIONS (4)
  - Arrhythmia [None]
  - Visual impairment [None]
  - Muscular weakness [None]
  - Ataxia [None]
